FAERS Safety Report 17459089 (Version 2)
Quarter: 2020Q1

REPORT INFORMATION
  Report Type: Spontaneous
  Country: CZ (occurrence: CZ)
  Receive Date: 20200225
  Receipt Date: 20200320
  Transmission Date: 20200409
  Serious: Yes (Other)
  Sender: FDA-Public Use
  Company Number: CZ-MYLANLABS-2020M1020469

PATIENT
  Sex: Male

DRUGS (7)
  1. METAMIZOLE [Suspect]
     Active Substance: METAMIZOLE
     Indication: PRODUCT USED FOR UNKNOWN INDICATION
     Dosage: UNK
     Route: 065
  2. SUBUTEX [Suspect]
     Active Substance: BUPRENORPHINE HYDROCHLORIDE
     Indication: PROPHYLAXIS
     Dosage: 8 MILLIGRAM, UNK
     Route: 065
     Dates: start: 2010
  3. TRAZODONE [Concomitant]
     Active Substance: TRAZODONE HYDROCHLORIDE
     Indication: PAIN
     Dosage: 75 MG, UNK
     Route: 065
  4. TRAZODONE [Concomitant]
     Active Substance: TRAZODONE HYDROCHLORIDE
     Dosage: 25 MILLIGRAM, QD (25 MG, QD AT NIGHT)
     Route: 065
  5. BUPRENORPHINE. [Suspect]
     Active Substance: BUPRENORPHINE
     Indication: PAIN
     Dosage: 52.5 MICROGRAM, QH (52.5 UG PER HOUR)
     Route: 065
  6. BUPRENORPHINE. [Suspect]
     Active Substance: BUPRENORPHINE
     Indication: ARTHRALGIA
     Dosage: 35 MICROGRAM, QH (35 UG, PER HOUR)
     Route: 065
  7. BUPRENORPHINE. [Suspect]
     Active Substance: BUPRENORPHINE
     Dosage: 52.5 UG PER HOUR (RE-INITIATED AFTER TWO WEEKS)

REACTIONS (12)
  - Pain in extremity [Unknown]
  - Osteonecrosis [Unknown]
  - Localised infection [Unknown]
  - Neuralgia [Unknown]
  - Arthralgia [Unknown]
  - Pneumonia [Unknown]
  - Drug withdrawal syndrome [Unknown]
  - Septic pulmonary embolism [Unknown]
  - Insomnia [Recovering/Resolving]
  - Endocarditis [Unknown]
  - Arthritis [Unknown]
  - Hip arthroplasty [Recovered/Resolved]

NARRATIVE: CASE EVENT DATE: 2010
